FAERS Safety Report 14685825 (Version 1)
Quarter: 2018Q1

REPORT INFORMATION
  Report Type: Report from Study
  Country: None (occurrence: US)
  Receive Date: 20180327
  Receipt Date: 20180327
  Transmission Date: 20180509
  Serious: Yes (Other)
  Sender: FDA-Public Use
  Company Number: US-BAUSCH-BL-2018-006974

PATIENT
  Sex: Female

DRUGS (3)
  1. CARDIZEM LA [Suspect]
     Active Substance: DILTIAZEM HYDROCHLORIDE
     Indication: HYPERTENSION
     Route: 065
     Dates: start: 201708
  2. CARDIZEM LA [Suspect]
     Active Substance: DILTIAZEM HYDROCHLORIDE
     Dosage: DOSE INCREASED
     Route: 065
  3. ELIQUIS [Concomitant]
     Active Substance: APIXABAN
     Indication: PRODUCT USED FOR UNKNOWN INDICATION

REACTIONS (6)
  - Weight decreased [Unknown]
  - Decreased appetite [Unknown]
  - Inability to afford medication [Unknown]
  - Heart rate irregular [Unknown]
  - Product availability issue [Unknown]
  - Vomiting [Unknown]
